FAERS Safety Report 10077473 (Version 1)
Quarter: 2014Q2

REPORT INFORMATION
  Report Type: Spontaneous
  Country: US (occurrence: US)
  Receive Date: 20140414
  Receipt Date: 20140414
  Transmission Date: 20141212
  Serious: No
  Sender: FDA-Public Use
  Company Number: US-BANPHARM-20131579

PATIENT
  Age: 62 Year
  Sex: 0
  Weight: 54.43 kg

DRUGS (6)
  1. ALEVE LIQUID GELS 220 MG [Suspect]
     Indication: PAIN
     Dosage: 1 DF, BID,
     Route: 048
     Dates: start: 20130805
  2. LUMIGAN [Concomitant]
  3. COMBIGAN [Concomitant]
  4. PAROXETINE [Concomitant]
  5. JANUVIA [Concomitant]
  6. PRILOSEC [Concomitant]

REACTIONS (1)
  - Drug effect incomplete [Unknown]
